FAERS Safety Report 5626263-2 (Version None)
Quarter: 2008Q1

REPORT INFORMATION
  Report Type: 
  Country: None (occurrence: None)
  Receive Date: 20080213
  Receipt Date: 20080213
  Transmission Date: 20080703
  Serious: No
  Sender: FDA-Public Use
  Company Number: None

PATIENT
  Sex: Female
  Weight: 56.246 kg

DRUGS (1)
  1. DELSYM [Suspect]
     Indication: COUGH
     Dosage: 1 TEASPOON 11:00PM 1 TEASPOON 1:45AM
     Dates: start: 20080116, end: 20080119

REACTIONS (7)
  - AGITATION [None]
  - BODY TEMPERATURE DECREASED [None]
  - DRY MOUTH [None]
  - HEART RATE INCREASED [None]
  - PERIPHERAL COLDNESS [None]
  - RESTLESSNESS [None]
  - TREMOR [None]
